FAERS Safety Report 8770824 (Version 2)
Quarter: 2013Q1

REPORT INFORMATION
  Report Type: Spontaneous
  Country: US (occurrence: US)
  Receive Date: 20120906
  Receipt Date: 20130102
  Transmission Date: 20140127
  Serious: Yes (Congenital Anomaly, Other)
  Sender: FDA-Public Use
  Company Number: US-PFIZER INC-2012217517

PATIENT
  Sex: Male

DRUGS (5)
  1. ZOLOFT [Suspect]
     Indication: DEPRESSION
     Dosage: UNK
     Route: 064
     Dates: start: 199810, end: 19981026
  2. ZOLOFT [Suspect]
     Indication: ANXIETY
  3. KLONOPIN [Concomitant]
     Dosage: UNK
     Route: 064
  4. TYLENOL [Concomitant]
     Dosage: UNK
     Route: 064
  5. PROZAC [Concomitant]
     Dosage: UNK
     Route: 064

REACTIONS (8)
  - Maternal exposure timing unspecified [Unknown]
  - Anal abscess [Not Recovered/Not Resolved]
  - Anal fistula [Not Recovered/Not Resolved]
  - Knee deformity [Unknown]
  - Asthma [Unknown]
  - Attention deficit/hyperactivity disorder [Unknown]
  - Developmental delay [Unknown]
  - Sensory integrative dysfunction [Unknown]
